FAERS Safety Report 5397979-0 (Version None)
Quarter: 2007Q3

REPORT INFORMATION
  Report Type: 
  Country: None (occurrence: None)
  Receive Date: 20070726
  Receipt Date: 20070725
  Transmission Date: 20080115
  Serious: Yes (Hospitalization)
  Sender: FDA-Public Use
  Company Number: US-BRISTOL-MYERS SQUIBB COMPANY-13857750

PATIENT
  Age: 54 Year
  Sex: Female
  Weight: 65 kg

DRUGS (9)
  1. PACLITAXEL [Suspect]
     Indication: NON-SMALL CELL LUNG CANCER
     Route: 042
     Dates: start: 20070622, end: 20070622
  2. CARBOPLATIN [Suspect]
     Indication: NON-SMALL CELL LUNG CANCER
     Route: 042
     Dates: start: 20070622, end: 20070622
  3. CHANTIX [Concomitant]
     Route: 048
     Dates: start: 20070529
  4. LUNESTA [Concomitant]
     Route: 048
     Dates: start: 20070426
  5. METHADONE HCL [Concomitant]
     Route: 048
     Dates: start: 20070529
  6. MORPHINE [Concomitant]
     Route: 048
     Dates: start: 20070528
  7. SENOKOT [Concomitant]
     Route: 048
     Dates: start: 20070528
  8. REMERON [Concomitant]
     Route: 048
     Dates: start: 20070529
  9. CARAFATE [Concomitant]
     Dates: start: 20070621

REACTIONS (2)
  - ABSCESS INTESTINAL [None]
  - DIVERTICULITIS [None]
